FAERS Safety Report 8960904 (Version 1)
Quarter: 2012Q4

REPORT INFORMATION
  Report Type: 
  Country: FR (occurrence: FR)
  Receive Date: 20121213
  Receipt Date: 20121213
  Transmission Date: 20130627
  Serious: Yes (Other)
  Sender: FDA-Public Use
  Company Number: FR-MERCK-1212FRA003417

PATIENT
  Age: 37 Year
  Sex: Female

DRUGS (9)
  1. ISENTRESS [Suspect]
     Indication: HIV INFECTION
     Dosage: 400 mg, bid
     Dates: start: 20120917, end: 20121013
  2. ISENTRESS [Suspect]
     Dosage: 400 mg, bid
     Route: 048
     Dates: start: 20121015, end: 20121016
  3. APTIVUS [Concomitant]
     Indication: HIV INFECTION
     Dosage: 500 mg, bid
     Route: 048
     Dates: start: 20120917
  4. NORVIR [Concomitant]
     Indication: HIV INFECTION
     Dosage: UNK
  5. TRUVADA [Concomitant]
     Indication: HIV INFECTION
     Dosage: UNK
  6. MYAMBUTOL [Concomitant]
     Dosage: UNK
  7. AZADOSE [Concomitant]
     Dosage: UNK
  8. ANSATIPINE [Concomitant]
     Dosage: UNK
  9. BACTRIM [Concomitant]
     Dosage: UNK

REACTIONS (2)
  - Insomnia [Recovered/Resolved]
  - Affective disorder [Recovered/Resolved]
